FAERS Safety Report 9013412 (Version 3)
Quarter: 2014Q2

REPORT INFORMATION
  Report Type: Spontaneous
  Country: US (occurrence: US)
  Receive Date: 20130114
  Receipt Date: 20140627
  Transmission Date: 20141212
  Serious: Yes (Hospitalization, Other)
  Sender: FDA-Public Use
  Company Number: US-009507513-1301USA005248

PATIENT
  Sex: Female
  Weight: 90.7 kg

DRUGS (1)
  1. NUVARING [Suspect]
     Indication: CONTRACEPTION
     Dosage: UNK
     Route: 067
     Dates: start: 20070428, end: 201207

REACTIONS (17)
  - Anaemia [Unknown]
  - Pulmonary embolism [Unknown]
  - Deep vein thrombosis [Unknown]
  - Blood triglycerides increased [Unknown]
  - Hypertension [Unknown]
  - Angina pectoris [Unknown]
  - Phlebitis [Unknown]
  - Oedema peripheral [Unknown]
  - Pain [Unknown]
  - Menorrhagia [Recovered/Resolved]
  - Hypoglycaemia [Unknown]
  - Dyspnoea [Unknown]
  - Diabetes mellitus [Unknown]
  - Tonsillectomy [Unknown]
  - Arthritis [Unknown]
  - Endometriosis [Unknown]
  - Drug hypersensitivity [Unknown]
